FAERS Safety Report 7884253-3 (Version None)
Quarter: 2011Q4

REPORT INFORMATION
  Report Type: 
  Country: None (occurrence: None)
  Receive Date: 20111102
  Receipt Date: 20111026
  Transmission Date: 20120403
  Serious: No
  Sender: FDA-Public Use
  Company Number: US-PFIZER INC-2011263037

PATIENT
  Sex: Female
  Weight: 66.213 kg

DRUGS (4)
  1. PROLIA [Suspect]
     Indication: OSTEOPOROSIS
     Dosage: UNK, TWICE A YEAR
     Dates: start: 20110707
  2. TRIAMTERENE AND HYDROCHLOROTHIAZIDE [Concomitant]
     Indication: HYPERTENSION
     Dosage: TRIAMTERENE 37.5MG/HYDROCHLOROTHIAZIDE 25MG, DAILY
  3. AMLODIPINE BESILATE [Concomitant]
     Indication: HYPERTENSION
     Dosage: 5 MG, DAILY
  4. CELEBREX [Suspect]
     Indication: PAIN
     Dosage: 200 MG, DAILY
     Dates: start: 20110724

REACTIONS (3)
  - DRUG INEFFECTIVE [None]
  - ARTHRITIS [None]
  - MALAISE [None]
